FAERS Safety Report 7881811-7 (Version None)
Quarter: 2011Q4

REPORT INFORMATION
  Report Type: 
  Country: None (occurrence: None)
  Receive Date: 20111101
  Receipt Date: 20110531
  Transmission Date: 20120403
  Serious: No
  Sender: FDA-Public Use
  Company Number: US-AMGEN-USASP2011028164

PATIENT
  Sex: Female

DRUGS (1)
  1. ENBREL [Suspect]
     Indication: RHEUMATOID ARTHRITIS
     Dosage: 50 MG, QWK
     Dates: start: 20091023, end: 20101201

REACTIONS (4)
  - PYREXIA [None]
  - APHTHOUS STOMATITIS [None]
  - ARTHRALGIA [None]
  - JOINT SWELLING [None]
